FAERS Safety Report 8901471 (Version 1)
Quarter: 2012Q4

REPORT INFORMATION
  Report Type: 
  Country: US (occurrence: US)
  Receive Date: 20121108
  Receipt Date: 20121108
  Transmission Date: 20130627
  Serious: Yes (Other)
  Sender: FDA-Public Use
  Company Number: US-BAYER-2012-116614

PATIENT
  Age: 54 Year
  Sex: Female

DRUGS (5)
  1. PHILLIPS^ MILK OF [Suspect]
     Indication: CONSTIPATION
     Dosage: 1 TBSP, QD
     Route: 048
     Dates: start: 200907, end: 201007
  2. PROBIOTICS [Concomitant]
  3. TUMERIC [Concomitant]
  4. DAILY VITAMINS [Concomitant]
  5. STOOL SOFTENER [Concomitant]

REACTIONS (2)
  - Incorrect drug administration duration [None]
  - Drug dependence [Recovered/Resolved]
